FAERS Safety Report 6743767-X (Version None)
Quarter: 2010Q2

REPORT INFORMATION
  Report Type: 
  Country: None (occurrence: None)
  Receive Date: 20100527
  Receipt Date: 20100517
  Transmission Date: 20101027
  Serious: Yes (Other)
  Sender: FDA-Public Use
  Company Number: US-AMGEN-QUU412958

PATIENT
  Sex: Female

DRUGS (1)
  1. ENBREL [Suspect]
     Indication: PSORIATIC ARTHROPATHY
     Route: 058
     Dates: start: 20100202

REACTIONS (10)
  - BENIGN HEPATIC NEOPLASM [None]
  - COUGH [None]
  - FATIGUE [None]
  - GASTRITIS [None]
  - HEADACHE [None]
  - NAUSEA [None]
  - NEOPLASM [None]
  - RENAL CYST [None]
  - URINARY TRACT INFECTION [None]
  - VOMITING [None]
